FAERS Safety Report 18012075 (Version 2)
Quarter: 2020Q4

REPORT INFORMATION
  Report Type: Spontaneous
  Country: FR (occurrence: FR)
  Receive Date: 20200713
  Receipt Date: 20201106
  Transmission Date: 20210113
  Serious: Yes (Hospitalization)
  Sender: FDA-Public Use
  Company Number: FR-SUN PHARMACEUTICAL INDUSTRIES LTD-2020RR-253396

PATIENT
  Age: 90 Year
  Sex: Female
  Weight: 78 kg

DRUGS (17)
  1. GENTAMICINE PANPHARMA 80 MG, SOLUTION INJECTABLE [Suspect]
     Active Substance: GENTAMICIN
     Indication: SEPSIS
     Dosage: 400 MILLIGRAM, DAILY
     Route: 042
     Dates: start: 20200423, end: 20200426
  2. LASILIX [Concomitant]
     Active Substance: FUROSEMIDE
     Indication: PRODUCT USED FOR UNKNOWN INDICATION
     Dosage: UNK
     Route: 065
  3. XANAX [Concomitant]
     Active Substance: ALPRAZOLAM
     Indication: PRODUCT USED FOR UNKNOWN INDICATION
     Dosage: UNK
     Route: 065
  4. DUROGESIC [Suspect]
     Active Substance: FENTANYL
     Indication: PAIN
     Dosage: 1 DOSAGE FORM/72 HOUR
     Route: 062
     Dates: start: 20200411, end: 20200515
  5. MORPHINE RENAUDIN [Suspect]
     Active Substance: MORPHINE
     Indication: PAIN
     Dosage: 3 MILLIGRAM, DAILY
     Route: 042
     Dates: start: 20200413, end: 20200515
  6. PERFALGAN [Suspect]
     Active Substance: ACETAMINOPHEN
     Indication: PAIN
     Dosage: 4 DOSAGE FORM, DAILY
     Route: 042
     Dates: start: 20200410, end: 20200515
  7. CEFOXITINE PANPHARMA 1 G, POUDRE POUR SOLUTION INJECTABLE (IV) [Suspect]
     Active Substance: CEFOXITIN SODIUM
     Indication: SEPSIS
     Dosage: 3 GRAM, DAILY
     Route: 042
     Dates: start: 20200429, end: 20200507
  8. TARDYFERON [Concomitant]
     Active Substance: FERROUS SULFATE
     Indication: PRODUCT USED FOR UNKNOWN INDICATION
     Dosage: UNK
     Route: 065
  9. DIFFU K [Concomitant]
     Active Substance: POTASSIUM CHLORIDE
     Indication: PRODUCT USED FOR UNKNOWN INDICATION
     Dosage: UNK
     Route: 065
  10. ALLOPURINOL. [Suspect]
     Active Substance: ALLOPURINOL
     Indication: PRODUCT USED FOR UNKNOWN INDICATION
     Dosage: 2 DOSAGE FORM, DAILY
     Route: 048
     Dates: start: 20200318, end: 20200515
  11. VANCOMYCINE SANDOZ 500 MG, POUDRE POUR SOLUTION POUR PERFUSION [Suspect]
     Active Substance: VANCOMYCIN HYDROCHLORIDE
     Indication: SEPSIS
     Dosage: 2 DOSAGE FORM, DAILY
     Route: 042
     Dates: start: 20200422, end: 20200429
  12. LACTULOSE. [Concomitant]
     Active Substance: LACTULOSE
     Indication: PRODUCT USED FOR UNKNOWN INDICATION
     Dosage: UNK
     Route: 065
  13. SPECIAFOLDINE [Concomitant]
     Active Substance: FOLIC ACID
     Indication: PRODUCT USED FOR UNKNOWN INDICATION
     Dosage: UNK
     Route: 065
  14. ROCEPHINE 1 G, POUDRE POUR SOLUTION INJECTABLE [Suspect]
     Active Substance: CEFTRIAXONE SODIUM
     Indication: SEPSIS
     Dosage: 2 GRAM, DAILY
     Route: 042
     Dates: start: 20200410, end: 20200415
  15. LOVENOX [Suspect]
     Active Substance: ENOXAPARIN SODIUM
     Indication: PROPHYLAXIS
     Dosage: 1 DOSAGE FORM, DAILY
     Route: 042
     Dates: start: 20200430, end: 20200515
  16. AMOXICILLINE ACIDE CLAVULANIQUE SANDOZ [Suspect]
     Active Substance: AMOXICILLIN\CLAVULANATE POTASSIUM
     Indication: SEPSIS
     Dosage: 3 DOSAGE FORM, DAILY
     Route: 042
     Dates: start: 20200415, end: 20200423
  17. LANSOYL [Concomitant]
     Active Substance: MINERAL OIL
     Indication: PRODUCT USED FOR UNKNOWN INDICATION
     Dosage: UNK
     Route: 065

REACTIONS (1)
  - Drug reaction with eosinophilia and systemic symptoms [Recovered/Resolved]

NARRATIVE: CASE EVENT DATE: 20200510
